FAERS Safety Report 6676265-2 (Version None)
Quarter: 2010Q2

REPORT INFORMATION
  Report Type: 
  Country: None (occurrence: None)
  Receive Date: 20100408
  Receipt Date: 20100327
  Transmission Date: 20101027
  Serious: Yes (Hospitalization)
  Sender: FDA-Public Use
  Company Number: 2010AP000634

PATIENT
  Age: 69 Year
  Sex: Female

DRUGS (6)
  1. LISINOPRIL [Suspect]
     Indication: HYPERTENSION
     Dosage: 10 MG;QD
  2. OLANZAPINE [Suspect]
     Indication: BIPOLAR DISORDER
     Dosage: 10MG; QD
  3. LITHIUM [Concomitant]
  4. ALPRAZOLAM [Concomitant]
  5. WARFARIN SODIUM [Concomitant]
  6. LEVOTHYROXINE [Concomitant]

REACTIONS (2)
  - PANCREATITIS ACUTE [None]
  - POTENTIATING DRUG INTERACTION [None]
